FAERS Safety Report 23123691 (Version 1)
Quarter: 2023Q4

REPORT INFORMATION
  Report Type: Spontaneous
  Country: DE (occurrence: DE)
  Receive Date: 20231030
  Receipt Date: 20231030
  Transmission Date: 20240110
  Serious: Yes (Death, Hospitalization, Other)
  Sender: FDA-Public Use
  Company Number: DE-BAYER-200112630BVD

PATIENT
  Age: 73 Year
  Sex: Female
  Weight: 64 kg

DRUGS (31)
  1. CIPROFLOXACIN HYDROCHLORIDE [Suspect]
     Active Substance: CIPROFLOXACIN HYDROCHLORIDE
     Indication: Cholangitis
     Dosage: 1000 MG, QD
     Route: 048
     Dates: start: 20010415, end: 20010426
  2. CIPROFLOXACIN HYDROCHLORIDE [Suspect]
     Active Substance: CIPROFLOXACIN HYDROCHLORIDE
     Indication: Cholangitis
     Dosage: 1 DF, BID
     Route: 042
     Dates: start: 20010426, end: 20010501
  3. METRONIDAZOLE [Suspect]
     Active Substance: METRONIDAZOLE
     Indication: Cholangitis
     Dosage: 400 MG, BID
     Route: 048
     Dates: start: 20010414, end: 20010426
  4. METRONIDAZOLE [Suspect]
     Active Substance: METRONIDAZOLE
     Indication: Cholangitis
     Dosage: 800 MG, QD
     Route: 042
     Dates: start: 20010426, end: 20010501
  5. MEZLOCILLIN SODIUM [Suspect]
     Active Substance: MEZLOCILLIN SODIUM
     Indication: Cholangitis
     Dosage: 2 G, TID
     Route: 042
     Dates: start: 20010428, end: 20010501
  6. OMEPRAZOLE [Suspect]
     Active Substance: OMEPRAZOLE
     Indication: Prophylaxis
     Dosage: 1 DF, QD
     Route: 042
     Dates: start: 20010426, end: 20010505
  7. OMEPRAZOLE [Suspect]
     Active Substance: OMEPRAZOLE
     Indication: Peptic ulcer
     Dosage: UNK
     Dates: start: 20010508, end: 20010508
  8. PANTOZOL [Suspect]
     Active Substance: PANTOPRAZOLE SODIUM
     Dosage: 20 MG (DAILY DOSE), QD, ORAL
     Route: 048
     Dates: start: 20010415, end: 20010426
  9. PANTOZOL [Suspect]
     Active Substance: PANTOPRAZOLE SODIUM
     Dosage: 20 MG (DAILY DOSE), QD, ORAL
     Route: 048
     Dates: start: 20010506
  10. HEPARIN [Suspect]
     Active Substance: HEPARIN SODIUM
     Indication: Thrombosis prophylaxis
     Dosage: 7500 IU, BID
     Route: 058
     Dates: start: 20010426, end: 20010512
  11. LOPERAMIDE [Suspect]
     Active Substance: LOPERAMIDE
     Indication: Diarrhoea
     Dosage: 1 DF, ONCE
     Route: 048
     Dates: start: 20010430, end: 20010430
  12. PENTAZOCINE [Suspect]
     Active Substance: PENTAZOCINE
     Indication: Pain
     Dosage: MG
     Route: 042
     Dates: start: 20010508, end: 20010508
  13. DIMENHYDRINATE [Suspect]
     Active Substance: DIMENHYDRINATE
     Indication: Nausea
     Dosage: 1 DF, ONCE
     Route: 042
     Dates: start: 20010508, end: 20010508
  14. ETILEFRINE [Suspect]
     Active Substance: ETILEFRINE
     Indication: Hypotension
     Dosage: 30 GTT, ONCE
     Route: 048
     Dates: start: 20010508, end: 20010508
  15. METOCLOPRAMIDE [Suspect]
     Active Substance: METOCLOPRAMIDE
     Indication: Nausea
     Dosage: 20 GTT (DAILY DOSE), ONCE, ORAL
     Route: 048
     Dates: start: 20010508, end: 20010508
  16. METOCLOPRAMIDE [Suspect]
     Active Substance: METOCLOPRAMIDE
     Indication: Nausea
     Dosage: 1 DF, QD
     Route: 042
     Dates: start: 20010508, end: 20010508
  17. HYMECROMONE [Suspect]
     Active Substance: HYMECROMONE
     Indication: Cholelithiasis
     Dosage: 1 DF, QD
     Route: 042
     Dates: start: 20010510
  18. DIMETHINDENE [Suspect]
     Active Substance: DIMETHINDENE
     Indication: Pruritus
     Dosage: UNK, ONCE
     Route: 048
     Dates: start: 200104
  19. DIMETHINDENE [Suspect]
     Active Substance: DIMETHINDENE
     Indication: Pruritus
     Dosage: UNK, ONCE
     Route: 048
     Dates: start: 20010511, end: 20010512
  20. DIMETHINDENE [Suspect]
     Active Substance: DIMETHINDENE
     Indication: Pruritus
     Dosage: UNK, ONCE
     Dates: start: 20010511, end: 20010511
  21. PREDNISOLONE SODIUM SUCCINATE [Suspect]
     Active Substance: PREDNISOLONE SODIUM SUCCINATE
     Indication: Pruritus
     Dosage: 100 MG, ONCE
     Route: 042
     Dates: start: 20010511, end: 20010511
  22. KALIUMKLORID [Concomitant]
     Indication: Hypokalaemia
     Dosage: UNK
     Route: 042
     Dates: start: 20010426, end: 20010501
  23. CARBIMAZOLE [Suspect]
     Active Substance: CARBIMAZOLE
     Indication: Hyperthyroidism
     Dosage: 5 MG, QD
     Route: 048
  24. ELECTROLYTES NOS [Concomitant]
     Active Substance: ELECTROLYTES NOS
     Dosage: DAILY DOSE 250 ML
     Route: 042
     Dates: start: 20010415, end: 20010505
  25. SODIUM CHLORIDE [Concomitant]
     Active Substance: SODIUM CHLORIDE
     Dosage: 100 ML, ONCE
     Route: 042
     Dates: start: 20010508, end: 20010508
  26. INSULIN HUMAN [Suspect]
     Active Substance: INSULIN HUMAN
     Indication: Diabetes mellitus
     Dosage: 16IU-12IU-8IU
     Dates: start: 20010415, end: 20010426
  27. INSULIN NOS [Suspect]
     Active Substance: INSULIN NOS
     Indication: Parenteral nutrition
     Dosage: 16IU-12IU-8IU
     Dates: start: 20010415, end: 20010505
  28. AMINO ACIDS\DEXTROSE\ELECTROLYTES NOS [Suspect]
     Active Substance: AMINO ACIDS\DEXTROSE\ELECTROLYTES NOS
     Indication: Parenteral nutrition
     Dosage: DAILY DOSE 500 ML
     Route: 042
     Dates: start: 20010415, end: 20010427
  29. POTASSIUM CHLORIDE [Concomitant]
     Active Substance: POTASSIUM CHLORIDE
     Indication: Hypokalaemia
     Dosage: 1 DF, QD
     Route: 048
     Dates: start: 20010506
  30. DEXTROSE [Suspect]
     Active Substance: DEXTROSE\DEXTROSE MONOHYDRATE
     Indication: Parenteral nutrition
     Dosage: DAILY DOSE 500 MG
     Dates: start: 20010415, end: 20010505
  31. ALDACTONE [Suspect]
     Active Substance: SPIRONOLACTONE
     Indication: Oedema
     Dosage: 100 MG, QD
     Dates: start: 20010415, end: 20010425

REACTIONS (11)
  - Toxic epidermal necrolysis [Fatal]
  - Stevens-Johnson syndrome [Fatal]
  - Circulatory collapse [Fatal]
  - Cardiac arrest [Fatal]
  - Blister [Unknown]
  - Conjunctivitis [Unknown]
  - Lip erosion [Unknown]
  - Pruritus [Unknown]
  - Rash maculo-papular [Unknown]
  - Skin exfoliation [Unknown]
  - Skin lesion [Unknown]

NARRATIVE: CASE EVENT DATE: 20010511
